FAERS Safety Report 6993824-8 (Version None)
Quarter: 2010Q3

REPORT INFORMATION
  Report Type: 
  Country: None (occurrence: None)
  Receive Date: 20100917
  Receipt Date: 20091130
  Transmission Date: 20110219
  Serious: No
  Sender: FDA-Public Use
  Company Number: US-ASTRAZENECA-2009SE29619

PATIENT
  Age: 25180 Day
  Sex: Female

DRUGS (1)
  1. SEROQUEL XR [Suspect]
     Route: 048
     Dates: start: 20091019, end: 20091029

REACTIONS (3)
  - HEADACHE [None]
  - MYALGIA [None]
  - WEIGHT INCREASED [None]
